FAERS Safety Report 23241468 (Version 2)
Quarter: 2024Q1

REPORT INFORMATION
  Report Type: Other
  Country: PT (occurrence: PT)
  Receive Date: 20231129
  Receipt Date: 20240313
  Transmission Date: 20240410
  Serious: Yes (Hospitalization, Other)
  Sender: FDA-Public Use
  Company Number: None

PATIENT
  Age: 88 Year
  Sex: Female

DRUGS (3)
  1. METFORMIN\VILDAGLIPTIN [Suspect]
     Active Substance: METFORMIN\VILDAGLIPTIN
     Indication: Type 2 diabetes mellitus
     Dosage: 1000 MG/50 MG
  2. OLMESARTAN [Suspect]
     Active Substance: OLMESARTAN
     Indication: Hypertension
     Dosage: UNK
  3. OLMESARTAN [Suspect]
     Active Substance: OLMESARTAN
     Indication: Thrombocytopenia

REACTIONS (11)
  - Weight decreased [Unknown]
  - Anaemia folate deficiency [Recovering/Resolving]
  - Folate deficiency [Unknown]
  - Vitamin B12 deficiency [Recovering/Resolving]
  - Anaemia megaloblastic [Recovered/Resolved]
  - Decreased appetite [Unknown]
  - Pallor [Unknown]
  - Mucosal discolouration [Unknown]
  - Vitamin B12 absorption test normal [Unknown]
  - Hypotension [Unknown]
  - Tachycardia [Unknown]
